FAERS Safety Report 18924393 (Version 5)
Quarter: 2021Q4

REPORT INFORMATION
  Report Type: Report from Study
  Country: DE (occurrence: DE)
  Receive Date: 20210222
  Receipt Date: 20211112
  Transmission Date: 20220303
  Serious: Yes (Life-Threatening, Other)
  Sender: FDA-Public Use
  Company Number: DE-MYLANLABS-2021M1010611

PATIENT
  Sex: Female
  Weight: 98 kg

DRUGS (3)
  1. ESCITALOPRAM [Suspect]
     Active Substance: ESCITALOPRAM OXALATE
     Indication: Product used for unknown indication
     Dosage: UNK
     Dates: start: 202007
  2. FRAGMIN [Suspect]
     Active Substance: DALTEPARIN SODIUM
     Indication: Product used for unknown indication
     Dosage: UNK
     Dates: start: 202007
  3. ENOXAPARIN SODIUM [Suspect]
     Active Substance: ENOXAPARIN SODIUM
     Indication: Thrombosis prophylaxis
     Dosage: 6000 INTERNATIONAL UNIT, QD
     Route: 058
     Dates: start: 202009

REACTIONS (6)
  - Thrombosis [Recovering/Resolving]
  - Pain in extremity [Recovering/Resolving]
  - Erythema [Recovering/Resolving]
  - Burning sensation [Recovering/Resolving]
  - Peripheral swelling [Recovering/Resolving]
  - Maternal exposure during pregnancy [Unknown]

NARRATIVE: CASE EVENT DATE: 20201227
